FAERS Safety Report 22208348 (Version 1)
Quarter: 2023Q2

REPORT INFORMATION
  Report Type: Spontaneous
  Country: US (occurrence: None)
  Receive Date: 20230413
  Receipt Date: 20230413
  Transmission Date: 20230722
  Serious: No
  Sender: FDA-Public Use
  Company Number: None

PATIENT
  Age: 60 Year
  Sex: Male

DRUGS (1)
  1. ABIRATERONE [Suspect]
     Active Substance: ABIRATERONE
     Dosage: FREQUENCY : DAILY;?
     Route: 048
     Dates: start: 20230210, end: 20230409

REACTIONS (6)
  - Diarrhoea [None]
  - Hot flush [None]
  - Drug ineffective [None]
  - Malignant neoplasm progression [None]
  - Metastases to lymph nodes [None]
  - Prostatic specific antigen increased [None]

NARRATIVE: CASE EVENT DATE: 20230210
